FAERS Safety Report 9714737 (Version 2)
Quarter: 2014Q1

REPORT INFORMATION
  Report Type: Spontaneous
  Country: JP (occurrence: JP)
  Receive Date: 20131126
  Receipt Date: 20140205
  Transmission Date: 20141002
  Serious: No
  Sender: FDA-Public Use
  Company Number: JP-B.I. PHARMACEUTICALS,INC./RIDGEFIELD-2013-BI-39185NB

PATIENT
  Age: 85 Year
  Sex: Female
  Weight: 48 kg

DRUGS (14)
  1. TRAZENTA [Suspect]
     Indication: DIABETES MELLITUS
     Dosage: 5 MG
     Route: 048
     Dates: start: 20131113, end: 20131118
  2. LIPITOR / ATORVASTATIN CALCIUM HYDRATE [Concomitant]
     Indication: DYSLIPIDAEMIA
     Dosage: 5 MG
     Route: 048
  3. WARFARIN [Concomitant]
     Indication: ATRIAL FIBRILLATION
     Dosage: 1.3 MG
     Route: 048
  4. ZETIA / EZETIMIBE [Concomitant]
     Indication: DYSLIPIDAEMIA
     Dosage: 10 MG
     Route: 048
  5. ZYLORIC / ALLOPURINOL [Concomitant]
     Indication: HYPERURICAEMIA
     Dosage: 100 MG
     Route: 048
  6. PREDNISOLONE [Concomitant]
     Indication: INTERSTITIAL LUNG DISEASE
     Dosage: 5 MG
     Route: 048
     Dates: start: 20120828
  7. PARIET [Concomitant]
     Indication: GASTROOESOPHAGEAL REFLUX DISEASE
     Dosage: 10 MG
     Route: 048
     Dates: start: 20121113
  8. KREMEZIN / SPHERICAL CARBON ADSORBENT [Concomitant]
     Indication: RENAL FAILURE CHRONIC
     Dosage: 6 G
     Route: 048
  9. MYSLEE / ZOLPIDEM TARTRATE [Concomitant]
     Indication: INSOMNIA
     Dosage: 5 MG
     Route: 048
     Dates: start: 20121113
  10. PIMOBENDAN [Concomitant]
     Indication: CARDIAC FAILURE
     Dosage: 2.5 MG
     Route: 048
     Dates: start: 20130821
  11. ALDACTONE A / SPIRONOLACTONE [Concomitant]
     Indication: CARDIAC FAILURE
     Dosage: 25 MG
     Route: 048
     Dates: start: 20110719
  12. LASIX / FUROSEMIDE [Concomitant]
     Indication: CARDIAC FAILURE
     Dosage: 80 MG
     Route: 048
  13. NATRIX / INDAPAMIDE [Concomitant]
     Indication: CARDIAC FAILURE
     Dosage: 1 MG
     Route: 048
     Dates: start: 20130821
  14. FRANDOL / ISOSORBIDE DINITRATE [Concomitant]
     Indication: MYOCARDIAL INFARCTION
     Dosage: 40 MG
     Route: 062
     Dates: start: 20130917

REACTIONS (2)
  - Lip swelling [Recovered/Resolved]
  - Oral mucosa erosion [Unknown]
